FAERS Safety Report 21118470 (Version 1)
Quarter: 2022Q3

REPORT INFORMATION
  Report Type: Spontaneous
  Country: US (occurrence: US)
  Receive Date: 20220722
  Receipt Date: 20220722
  Transmission Date: 20221027
  Serious: No
  Sender: FDA-Public Use
  Company Number: US-GSK-US2022AMR108675

PATIENT
  Sex: Female

DRUGS (3)
  1. BENLYSTA [Suspect]
     Active Substance: BELIMUMAB
     Indication: Systemic lupus erythematosus
     Dosage: 200 MG/ML, WE
     Dates: start: 201710
  2. BENLYSTA [Suspect]
     Active Substance: BELIMUMAB
     Indication: Embolism
  3. BENLYSTA [Suspect]
     Active Substance: BELIMUMAB
     Indication: Deep vein thrombosis

REACTIONS (3)
  - Hip arthroplasty [Unknown]
  - Hysterectomy [Unknown]
  - Fistula repair [Unknown]
